FAERS Safety Report 8330842-1 (Version None)
Quarter: 2012Q2

REPORT INFORMATION
  Report Type: 
  Country: None (occurrence: None)
  Receive Date: 20120502
  Receipt Date: 20120410
  Transmission Date: 20120825
  Serious: No
  Sender: FDA-Public Use
  Company Number: US-AMGEN-USASP2012023684

PATIENT
  Age: 58 Year
  Sex: Female

DRUGS (1)
  1. ENBREL [Suspect]
     Indication: RHEUMATOID ARTHRITIS
     Dosage: 50 MG, QWK
     Dates: start: 20030401, end: 20040101

REACTIONS (11)
  - PLICA SYNDROME [None]
  - MASS [None]
  - PAIN IN EXTREMITY [None]
  - TENDONITIS [None]
  - ROTATOR CUFF SYNDROME [None]
  - BURSITIS [None]
  - DRUG INEFFECTIVE [None]
  - CHONDROMA [None]
  - INJECTION SITE PAIN [None]
  - OSTEOARTHRITIS [None]
  - BONE DEFORMITY [None]
